FAERS Safety Report 6712694-6 (Version None)
Quarter: 2010Q2

REPORT INFORMATION
  Report Type: 
  Country: None (occurrence: None)
  Receive Date: 20100505
  Receipt Date: 20100505
  Transmission Date: 20101027
  Serious: Yes (Death)
  Sender: FDA-Public Use
  Company Number: None

PATIENT
  Age: 47 Year
  Sex: Male
  Weight: 95.2554 kg

DRUGS (1)
  1. ZOSYN [Suspect]
     Indication: CELLULITIS
     Dates: start: 20090304, end: 20090313

REACTIONS (1)
  - RENAL FAILURE [None]
